FAERS Safety Report 7760032-2 (Version None)
Quarter: 2011Q3

REPORT INFORMATION
  Report Type: 
  Country: None (occurrence: None)
  Receive Date: 20110919
  Receipt Date: 20110906
  Transmission Date: 20111222
  Serious: Yes (Other)
  Sender: FDA-Public Use
  Company Number: US-BAYER-201030900NA

PATIENT
  Age: 30 Year
  Sex: Female
  Weight: 85.261 kg

DRUGS (3)
  1. YASMIN [Suspect]
     Dosage: UNK UNK, UNK
     Route: 048
     Dates: start: 20060101, end: 20080701
  2. DROSPIRENONE AND ETHINYL ESTRADIOL [Suspect]
     Dosage: UNK
     Dates: start: 20080701, end: 20090801
  3. IBUPROFEN [Concomitant]

REACTIONS (6)
  - FREQUENT BOWEL MOVEMENTS [None]
  - CHOLECYSTITIS CHRONIC [None]
  - DIARRHOEA [None]
  - CHOLELITHIASIS [None]
  - DYSPEPSIA [None]
  - ABDOMINAL PAIN [None]
